FAERS Safety Report 4365812-1 (Version None)
Quarter: 2004Q2

REPORT INFORMATION
  Report Type: 
  Country: None (occurrence: None)
  Receive Date: 20040520
  Receipt Date: 20040505
  Transmission Date: 20050107
  Serious: Yes (Other)
  Sender: FDA-Public Use
  Company Number: S04-USA-02758-01

PATIENT

DRUGS (1)
  1. NAMENDA [Suspect]

REACTIONS (1)
  - MYOCLONUS [None]
